FAERS Safety Report 23674920 (Version 1)
Quarter: 2024Q1

REPORT INFORMATION
  Report Type: Spontaneous
  Country: US (occurrence: US)
  Receive Date: 20240326
  Receipt Date: 20240326
  Transmission Date: 20240410
  Serious: No
  Sender: FDA-Public Use
  Company Number: US-PFIZER INC-202400072920

PATIENT

DRUGS (1)
  1. RITLECITINIB [Suspect]
     Active Substance: RITLECITINIB
     Indication: Vitiligo
     Dosage: UNK

REACTIONS (2)
  - Off label use [Unknown]
  - Therapeutic response unexpected [Unknown]
